FAERS Safety Report 10860742 (Version 3)
Quarter: 2015Q1

REPORT INFORMATION
  Report Type: Spontaneous
  Country: JP (occurrence: JP)
  Receive Date: 20150224
  Receipt Date: 20150324
  Transmission Date: 20150721
  Serious: Yes (Hospitalization)
  Sender: FDA-Public Use
  Company Number: PHJP2015JP001892

PATIENT
  Age: 70 Year
  Sex: Female

DRUGS (2)
  1. AREDIA [Suspect]
     Active Substance: PAMIDRONATE DISODIUM
     Indication: METASTASES TO BONE
     Dosage: 90 MG, PER ADMINISTRATION
     Route: 041
     Dates: start: 20050221, end: 20060413
  2. ZOMETA [Suspect]
     Active Substance: ZOLEDRONIC ACID
     Indication: METASTASES TO BONE
     Dosage: 4 MG, PER ADMINISTRATION
     Route: 041
     Dates: start: 20060511, end: 20130617

REACTIONS (5)
  - Osteosclerosis [Unknown]
  - Atypical femur fracture [Recovering/Resolving]
  - Exostosis [Unknown]
  - Pain in extremity [Unknown]
  - Fall [Unknown]

NARRATIVE: CASE EVENT DATE: 20111028
